FAERS Safety Report 12655505 (Version 1)
Quarter: 2016Q3

REPORT INFORMATION
  Report Type: Spontaneous
  Country: US (occurrence: US)
  Receive Date: 20160816
  Receipt Date: 20160816
  Transmission Date: 20161109
  Serious: No
  Sender: FDA-Public Use
  Company Number: US-PFIZER INC-2016078894

PATIENT
  Sex: Male

DRUGS (1)
  1. AMPICILLIN SODIUM. [Suspect]
     Active Substance: AMPICILLIN SODIUM
     Indication: BRONCHITIS
     Dosage: UNK

REACTIONS (1)
  - Drug ineffective [Unknown]
